FAERS Safety Report 5865888-6 (Version None)
Quarter: 2008Q3

REPORT INFORMATION
  Report Type: 
  Country: None (occurrence: None)
  Receive Date: 20080829
  Receipt Date: 20080819
  Transmission Date: 20090109
  Serious: Yes (Other)
  Sender: FDA-Public Use
  Company Number: TR-BAUSCH-2008BL003621

PATIENT
  Age: 37 Year
  Sex: Male

DRUGS (9)
  1. CYCLOPENTOLATE HYDROCHLORIDE [Suspect]
     Indication: UVEITIS
     Route: 047
     Dates: start: 19910101
  2. METHYLPREDNISOLONE 16MG TAB [Concomitant]
     Indication: BEHCET'S SYNDROME
     Dates: start: 19900101
  3. DEXAMETHASONE TAB [Concomitant]
     Indication: UVEITIS
     Dates: start: 19910101
  4. SERTRALINE [Concomitant]
  5. RISPERIDONE [Concomitant]
  6. FLUOXETINE /N/A/ [Concomitant]
  7. ESCITALOPRAM [Concomitant]
     Dates: start: 20070925
  8. PIMOZIDE [Concomitant]
     Dates: start: 20070925
  9. CARBAMAZEPINE [Concomitant]
     Dates: start: 20070925

REACTIONS (2)
  - DRUG ABUSER [None]
  - DRUG DEPENDENCE [None]
